FAERS Safety Report 8860197 (Version 2)
Quarter: 2012Q4

REPORT INFORMATION
  Report Type: 
  Country: US (occurrence: US)
  Receive Date: 20121025
  Receipt Date: 20121206
  Transmission Date: 20130627
  Serious: Yes (Other)
  Sender: FDA-Public Use
  Company Number: US-AMGEN-USASP2011067718

PATIENT
  Age: 0 Year
  Sex: Female
  Weight: 11.44 kg

DRUGS (6)
  1. ENBREL [Suspect]
     Indication: COGAN^S SYNDROME
     Dosage: 50 mg, qwk
     Route: 064
     Dates: start: 200911, end: 20111005
  2. ENBREL [Suspect]
     Indication: COGAN^S SYNDROME
     Dosage: 50 mg, qwk
     Route: 064
     Dates: start: 200911, end: 20111005
  3. PRENATAL VITAMINS                  /01549301/ [Concomitant]
     Dosage: UNK UNK, qd
     Route: 063
     Dates: start: 201010
  4. CALCIUM [Concomitant]
     Dosage: 630 mg, qd
     Route: 063
     Dates: start: 2006
  5. FOLIC ACID [Concomitant]
     Dosage: 400 mg, qd
     Route: 063
     Dates: start: 201010
  6. ZANTAC [Concomitant]
     Indication: DYSPEPSIA
     Dosage: 150 mg, bid
     Route: 048
     Dates: start: 201101, end: 201111

REACTIONS (2)
  - Neonatal aspiration [Recovered/Resolved]
  - Cardiac murmur [Recovered/Resolved]
